FAERS Safety Report 11855479 (Version 1)
Quarter: 2015Q4

REPORT INFORMATION
  Report Type: Spontaneous
  Country: US (occurrence: None)
  Receive Date: 20151218
  Receipt Date: 20151218
  Transmission Date: 20160305
  Serious: Yes (Hospitalization)
  Sender: FDA-Public Use
  Company Number: None

PATIENT
  Age: 64 Year
  Sex: Male
  Weight: 73 kg

DRUGS (14)
  1. XIFAXAN [Concomitant]
     Active Substance: RIFAXIMIN
  2. LACTULOSE. [Concomitant]
     Active Substance: LACTULOSE
  3. SOVALDI [Suspect]
     Active Substance: SOFOSBUVIR
     Indication: HEPATITIS C
     Route: 048
     Dates: start: 20140926, end: 20150313
  4. CALCIUM ACETATE. [Concomitant]
     Active Substance: CALCIUM ACETATE
  5. WARFARIN [Concomitant]
     Active Substance: WARFARIN
  6. MEGESTROL [Concomitant]
     Active Substance: MEGESTROL
  7. TACROLIMUS. [Concomitant]
     Active Substance: TACROLIMUS
  8. TRAXODONE [Concomitant]
  9. LEVETIRACETAM. [Concomitant]
     Active Substance: LEVETIRACETAM
  10. MYFORTIC [Concomitant]
     Active Substance: MYCOPHENOLATE SODIUM
  11. ALPRAZOLAM. [Concomitant]
     Active Substance: ALPRAZOLAM
  12. RIBAVIRIN. [Suspect]
     Active Substance: RIBAVIRIN
     Indication: HEPATITIS C
     Route: 048
     Dates: start: 20140926, end: 20150313
  13. GABAPENTIN. [Concomitant]
     Active Substance: GABAPENTIN
  14. AMLODIPINE [Concomitant]
     Active Substance: AMLODIPINE BESYLATE

REACTIONS (1)
  - Malaise [None]
